FAERS Safety Report 7013616-3 (Version None)
Quarter: 2010Q3

REPORT INFORMATION
  Report Type: 
  Country: None (occurrence: None)
  Receive Date: 20100924
  Receipt Date: 20100916
  Transmission Date: 20110219
  Serious: Yes (Other)
  Sender: FDA-Public Use
  Company Number: FR-ABBOTT-10P-056-0662575-00

PATIENT
  Sex: Female

DRUGS (1)
  1. ENANTONE 11.25 MG [Suspect]
     Indication: PRECOCIOUS PUBERTY
     Route: 030
     Dates: start: 20091215

REACTIONS (5)
  - ABDOMINAL PAIN [None]
  - HOT FLUSH [None]
  - MYALGIA [None]
  - NAUSEA [None]
  - TENDON PAIN [None]
